FAERS Safety Report 7982264-0 (Version None)
Quarter: 2011Q4

REPORT INFORMATION
  Report Type: 
  Country: None (occurrence: None)
  Receive Date: 20111215
  Receipt Date: 20111215
  Transmission Date: 20120403
  Serious: Yes (Hospitalization)
  Sender: FDA-Public Use
  Company Number: None

PATIENT
  Age: 59 Year
  Sex: Female
  Weight: 56.699 kg

DRUGS (1)
  1. THYROID TAB [Suspect]
     Indication: THYROID DISORDER
     Dosage: 15MG
     Route: 048
     Dates: start: 20110916, end: 20111016

REACTIONS (4)
  - DYSARTHRIA [None]
  - SKIN EXFOLIATION [None]
  - MUSCULOSKELETAL DISORDER [None]
  - RASH GENERALISED [None]
